FAERS Safety Report 6379726-9 (Version None)
Quarter: 2009Q3

REPORT INFORMATION
  Report Type: 
  Country: None (occurrence: None)
  Receive Date: 20090928
  Receipt Date: 20090916
  Transmission Date: 20100115
  Serious: Yes (Hospitalization)
  Sender: FDA-Public Use
  Company Number: FR-AVENTIS-200913486FR

PATIENT
  Age: 85 Year
  Sex: Female

DRUGS (7)
  1. LASIX [Suspect]
     Route: 048
     Dates: start: 20090413, end: 20090422
  2. TRIATEC                            /00885601/ [Suspect]
     Route: 048
     Dates: start: 20090413, end: 20090422
  3. KARDEGIC                           /00002703/ [Concomitant]
     Indication: DRUG USE FOR UNKNOWN INDICATION
     Route: 048
     Dates: start: 20090413
  4. TAHOR [Concomitant]
     Indication: DRUG USE FOR UNKNOWN INDICATION
     Route: 048
     Dates: start: 20090413
  5. MOPRAL [Concomitant]
     Indication: DRUG USE FOR UNKNOWN INDICATION
     Route: 048
     Dates: start: 20090413
  6. SURBRONC [Concomitant]
     Indication: DRUG USE FOR UNKNOWN INDICATION
     Route: 048
     Dates: start: 20090413
  7. LOVENOX [Concomitant]
     Indication: DRUG USE FOR UNKNOWN INDICATION
     Route: 058
     Dates: start: 20090413, end: 20090423

REACTIONS (4)
  - CEREBROVASCULAR ACCIDENT [None]
  - DEHYDRATION [None]
  - DRUG EFFECT INCREASED [None]
  - HYPOTENSION [None]
